FAERS Safety Report 7470663-5 (Version None)
Quarter: 2011Q2

REPORT INFORMATION
  Report Type: 
  Country: None (occurrence: None)
  Receive Date: 20110510
  Receipt Date: 20110505
  Transmission Date: 20111010
  Serious: Yes (Hospitalization)
  Sender: FDA-Public Use
  Company Number: CA-B.I. PHARMACEUTICALS,INC./RIDGEFIELD-2011-CN-00585CN

PATIENT
  Age: 71 Year
  Sex: Female

DRUGS (2)
  1. ATENOLOL [Concomitant]
     Indication: HEART RATE INCREASED
  2. PRADAXA [Suspect]
     Indication: ATRIAL FIBRILLATION
     Dosage: 300 MG
     Route: 048
     Dates: start: 20110420, end: 20110421

REACTIONS (2)
  - TACHYCARDIA [None]
  - SWOLLEN TONGUE [None]
